FAERS Safety Report 13198012 (Version 1)
Quarter: 2017Q1

REPORT INFORMATION
  Report Type: Spontaneous
  Country: US (occurrence: US)
  Receive Date: 20170208
  Receipt Date: 20170208
  Transmission Date: 20170428
  Serious: No
  Sender: FDA-Public Use
  Company Number: US-PERRIGO-16US015630

PATIENT
  Age: 52 Year
  Sex: Female
  Weight: 92.97 kg

DRUGS (2)
  1. METFORMIN [Concomitant]
     Active Substance: METFORMIN HYDROCHLORIDE
     Indication: DIABETES MELLITUS
     Dosage: UNK
     Route: 065
  2. IBUPROFEN AND DIPHENHYDRAMINE CITRATE [Suspect]
     Active Substance: DIPHENHYDRAMINE CITRATE\IBUPROFEN
     Indication: HEADACHE
     Dosage: 3 TABLETS, SINGLE
     Route: 048
     Dates: start: 20160426, end: 20160426

REACTIONS (1)
  - Product name confusion [Recovered/Resolved]

NARRATIVE: CASE EVENT DATE: 20160426
